FAERS Safety Report 7998231-7 (Version None)
Quarter: 2011Q4

REPORT INFORMATION
  Report Type: 
  Country: None (occurrence: None)
  Receive Date: 20111221
  Receipt Date: 20110503
  Transmission Date: 20120403
  Serious: No
  Sender: FDA-Public Use
  Company Number: US-GLAXOSMITHKLINE-A0925581A

PATIENT
  Age: 45 Year
  Sex: Male

DRUGS (4)
  1. NIASPAN [Concomitant]
  2. LOVAZA [Suspect]
     Indication: BLOOD TRIGLYCERIDES INCREASED
     Dosage: 2CAP TWICE PER DAY
     Route: 048
     Dates: start: 20110421
  3. VITAMIN COMPLEX [Concomitant]
  4. GREEN TEA [Concomitant]

REACTIONS (3)
  - BURNING SENSATION [None]
  - HYPERSENSITIVITY [None]
  - ERYTHEMA [None]
